FAERS Safety Report 6824557-6 (Version None)
Quarter: 2010Q3

REPORT INFORMATION
  Report Type: 
  Country: None (occurrence: None)
  Receive Date: 20100708
  Receipt Date: 20070319
  Transmission Date: 20110219
  Serious: No
  Sender: FDA-Public Use
  Company Number: US-PFIZER INC-2006130136

PATIENT
  Age: 49 Year
  Sex: Male
  Weight: 122.92 kg

DRUGS (6)
  1. CHANTIX [Suspect]
     Indication: SMOKING CESSATION THERAPY
     Dates: start: 20060901, end: 20061001
  2. CHANTIX [Suspect]
     Indication: TOBACCO ABUSE
  3. THYROID TAB [Concomitant]
  4. ALTACE [Concomitant]
  5. LIPITOR [Concomitant]
  6. METOPROLOL [Concomitant]

REACTIONS (2)
  - NAUSEA [None]
  - URINARY INCONTINENCE [None]
